FAERS Safety Report 17845852 (Version 9)
Quarter: 2020Q4

REPORT INFORMATION
  Report Type: Report from Study
  Country: US (occurrence: US)
  Receive Date: 20200601
  Receipt Date: 20201211
  Transmission Date: 20210113
  Serious: Yes (Death, Hospitalization)
  Sender: FDA-Public Use
  Company Number: US-DSJP-DSU-2020-114266

PATIENT
  Age: 54 Year
  Sex: Male
  Weight: 87.98 kg

DRUGS (3)
  1. PEXIDARTINIB [Suspect]
     Active Substance: PEXIDARTINIB
     Dosage: 1 DF (200 MG), BID
     Route: 048
     Dates: start: 20200601
  2. PEXIDARTINIB [Suspect]
     Active Substance: PEXIDARTINIB
     Indication: SYNOVITIS
     Dosage: 400 MG, BID
     Route: 048
     Dates: start: 20200508, end: 20201130
  3. PEXIDARTINIB [Suspect]
     Active Substance: PEXIDARTINIB
     Dosage: 200 MG, BID
     Route: 048

REACTIONS (8)
  - Pain [Recovered/Resolved]
  - Blood triglycerides increased [Recovered/Resolved]
  - COVID-19 [Not Recovered/Not Resolved]
  - Flatulence [Recovered/Resolved]
  - Death [Fatal]
  - Cholelithiasis [Recovered/Resolved]
  - Hypertension [Recovered/Resolved]
  - Hepatic mass [Recovered/Resolved]

NARRATIVE: CASE EVENT DATE: 2020
